FAERS Safety Report 6576781-8 (Version None)
Quarter: 2010Q1

REPORT INFORMATION
  Report Type: 
  Country: None (occurrence: None)
  Receive Date: 20100210
  Receipt Date: 20100205
  Transmission Date: 20100710
  Serious: Yes (Hospitalization)
  Sender: FDA-Public Use
  Company Number: JP-SANOFI-AVENTIS-2010SA004209

PATIENT
  Age: 54 Year
  Sex: Male

DRUGS (12)
  1. LANTUS [Suspect]
     Dosage: DOSE:4 UNIT(S)
     Route: 058
     Dates: start: 20091204, end: 20091210
  2. LANTUS [Suspect]
     Dosage: DOSE:8 UNIT(S)
     Route: 058
     Dates: start: 20091211, end: 20091217
  3. LANTUS [Suspect]
     Dosage: DOSE:12 UNIT(S)
     Route: 058
     Dates: start: 20091218, end: 20091224
  4. LANTUS [Suspect]
     Dosage: DOSE:16 UNIT(S)
     Route: 058
     Dates: start: 20091225, end: 20100105
  5. LANTUS [Suspect]
     Dosage: DOSE:20 UNIT(S)
     Route: 058
     Dates: start: 20100106
  6. SOLOSTAR [Suspect]
     Dates: start: 20091204
  7. PIOGLITAZONE HYDROCHLORIDE [Concomitant]
     Route: 048
     Dates: start: 20090609, end: 20100122
  8. MELBIN [Concomitant]
     Route: 048
     Dates: start: 20090609, end: 20100122
  9. LIPIDIL [Concomitant]
     Indication: HYPERLIPIDAEMIA
     Route: 048
     Dates: start: 20090609, end: 20100122
  10. ROSUVASTATIN CALCIUM [Concomitant]
     Indication: HYPERLIPIDAEMIA
     Route: 048
     Dates: start: 20090731, end: 20100122
  11. HALCION [Concomitant]
     Indication: INSOMNIA
     Route: 048
     Dates: start: 20090826, end: 20091023
  12. HALCION [Concomitant]
     Route: 048
     Dates: start: 20091024

REACTIONS (1)
  - HEPATIC FUNCTION ABNORMAL [None]
